FAERS Safety Report 9243873 (Version 2)
Quarter: 2013Q2

REPORT INFORMATION
  Report Type: Spontaneous
  Country: US (occurrence: US)
  Receive Date: 20130422
  Receipt Date: 20130503
  Transmission Date: 20140414
  Serious: Yes (Death)
  Sender: FDA-Public Use
  Company Number: US-009507513-1304USA009944

PATIENT
  Age: 56 Year
  Sex: Female

DRUGS (10)
  1. SAPHRIS [Suspect]
     Indication: SCHIZOAFFECTIVE DISORDER BIPOLAR TYPE
     Dosage: 5 MG DAILY
     Route: 060
     Dates: start: 20120820
  2. SAPHRIS [Suspect]
     Dosage: 20 MG DAILY
     Route: 060
     Dates: end: 20120927
  3. AMANTADINE HYDROCHLORIDE [Concomitant]
     Indication: ANXIETY
     Dosage: 100 MG DAILY
     Route: 048
  4. CLONIDINE [Concomitant]
     Indication: ANXIETY
     Dosage: 0.05 MG, UNK
     Route: 048
  5. CLONIDINE [Concomitant]
     Indication: MOOD ALTERED
  6. COLACE [Concomitant]
     Indication: CONSTIPATION
     Dosage: 100 MG DAILY
     Route: 048
  7. LUVOX [Concomitant]
     Indication: ANTIDEPRESSANT THERAPY
     Dosage: 150 MG DAILY
     Route: 048
  8. KLONOPIN [Concomitant]
     Indication: ANXIETY
     Dosage: 2 MG DAILY
     Route: 048
  9. RITALIN [Concomitant]
     Indication: DEPRESSION
     Dosage: 5 MG DAILY
  10. TEGRETOL [Concomitant]
     Indication: MOOD ALTERED
     Dosage: 200 MG, BID

REACTIONS (3)
  - Death [Fatal]
  - Gingival pain [Recovered/Resolved]
  - Gingival recession [Recovered/Resolved]
